FAERS Safety Report 10380665 (Version 2)
Quarter: 2014Q4

REPORT INFORMATION
  Report Type: Spontaneous
  Country: JP (occurrence: JP)
  Receive Date: 20140813
  Receipt Date: 20141013
  Transmission Date: 20150528
  Serious: Yes (Other)
  Sender: FDA-Public Use
  Company Number: PHHY2014JP099915

PATIENT
  Age: 4 Year
  Sex: Female

DRUGS (4)
  1. NEORAL [Suspect]
     Active Substance: CYCLOSPORINE
     Indication: PRODUCT USED FOR UNKNOWN INDICATION
     Dosage: 0.4 ML, DAILY
     Route: 048
     Dates: start: 20140722, end: 20140806
  2. NEORAL [Suspect]
     Active Substance: CYCLOSPORINE
     Dosage: 10 MG, QID
  3. PREDONINE [Concomitant]
     Active Substance: PREDNISOLONE\PREDNISOLONE ACETATE\PREDNISOLONE SODIUM SUCCINATE
     Dosage: UNK
     Route: 048
  4. NEORAL [Suspect]
     Active Substance: CYCLOSPORINE
     Indication: PRODUCT USED FOR UNKNOWN INDICATION
     Dosage: 40 MG, DAILY
     Route: 065
     Dates: start: 20140826

REACTIONS (3)
  - Immunosuppressant drug level increased [Unknown]
  - Ventricular extrasystoles [Unknown]
  - Arrhythmia [Recovering/Resolving]

NARRATIVE: CASE EVENT DATE: 20140805
